FAERS Safety Report 6145931-X (Version None)
Quarter: 2009Q2

REPORT INFORMATION
  Report Type: 
  Country: None (occurrence: None)
  Receive Date: 20090407
  Receipt Date: 20090330
  Transmission Date: 20091009
  Serious: Yes (Other)
  Sender: FDA-Public Use
  Company Number: PHHY2009US12038

PATIENT
  Age: 68 Year
  Sex: Male

DRUGS (8)
  1. ZOLEDRONIC ACID [Suspect]
     Indication: MULTIPLE MYELOMA
     Dosage: 4 MG, QMO
     Route: 042
  2. DEXAMETHASONE [Concomitant]
  3. GABAPENTIN [Concomitant]
  4. ATORVASTATIN [Concomitant]
  5. ATENOLOL [Concomitant]
  6. THALIDOMIDE [Concomitant]
  7. METFORMIN HCL [Concomitant]
  8. HYDROCHLOROTHIAZIDE [Concomitant]

REACTIONS (4)
  - BONE DISORDER [None]
  - OSTEONECROSIS [None]
  - PALATAL DISORDER [None]
  - TOOTH EXTRACTION [None]
